FAERS Safety Report 4263110-8 (Version None)
Quarter: 2004Q1

REPORT INFORMATION
  Report Type: 
  Country: None (occurrence: None)
  Receive Date: 20040102
  Receipt Date: 20040102
  Transmission Date: 20041129
  Serious: Yes (Hospitalization)
  Sender: FDA-Public Use
  Company Number: None

PATIENT
  Sex: Male
  Weight: 76.3 kg

DRUGS (4)
  1. SULFAMETHOXAZOLE + TRIMETHOPRIM [Suspect]
     Indication: URINARY TRACT INFECTION
     Dosage: DS ONE DOSE PO BID
     Route: 048
  2. ISONIAZID [Concomitant]
  3. GABAPENTIN [Concomitant]
  4. DIVALPROEX SODIUM [Concomitant]

REACTIONS (1)
  - RASH PRURITIC [None]
